FAERS Safety Report 20314704 (Version 1)
Quarter: 2022Q1

REPORT INFORMATION
  Report Type: Spontaneous
  Country: CA (occurrence: CA)
  Receive Date: 20220110
  Receipt Date: 20220110
  Transmission Date: 20220423
  Serious: Yes (Other)
  Sender: FDA-Public Use
  Company Number: CA-PFIZER INC-202200003994

PATIENT
  Age: 85 Year
  Sex: Male

DRUGS (2)
  1. LORAZEPAM [Suspect]
     Active Substance: LORAZEPAM
     Dosage: UNK
  2. ZOPICLONE [Suspect]
     Active Substance: ZOPICLONE
     Dosage: UNK

REACTIONS (1)
  - Fall [Unknown]
